FAERS Safety Report 6761409-4 (Version None)
Quarter: 2010Q2

REPORT INFORMATION
  Report Type: 
  Country: None (occurrence: None)
  Receive Date: 20100608
  Receipt Date: 20100528
  Transmission Date: 20101027
  Serious: Yes (Hospitalization)
  Sender: FDA-Public Use
  Company Number: US-ROCHE-680177

PATIENT
  Sex: Female
  Weight: 60 kg

DRUGS (10)
  1. PEGINTERFERON ALFA-2A [Suspect]
     Indication: HEPATITIS C
     Dosage: LAST DOSE PRIOR TO SAE: 08 JANUARY 2010.
     Route: 058
     Dates: start: 20090821, end: 20100115
  2. PEGINTERFERON ALFA-2A [Suspect]
     Route: 058
     Dates: start: 20100122
  3. RIBAVIRIN [Suspect]
     Indication: HEPATITIS C
     Dosage: DRUG REPORTED AS RIBA PAK. DATE OF LAST DOSE PRIOT TO SAE: 12 JANUARY 2010.
     Route: 048
     Dates: start: 20090821, end: 20100112
  4. RIBAVIRIN [Suspect]
     Route: 048
     Dates: start: 20100119
  5. DURAGESIC-100 [Concomitant]
     Dates: start: 20080101
  6. ZYPREXA [Concomitant]
     Dates: start: 20080101, end: 20091228
  7. LAMICTAL [Concomitant]
     Dates: start: 20080101, end: 20091228
  8. BC POWDER [Concomitant]
     Dosage: REPORTED AS SALICYLAMIDE 195 MG, ASA 650 MG AND CAFFEINE 33.3 MG.
     Dates: start: 20030101
  9. NEXIUM [Concomitant]
     Dates: start: 20090601
  10. NEUPOGEN [Concomitant]
     Dates: start: 20091130

REACTIONS (4)
  - DIARRHOEA [None]
  - HYPOKALAEMIA [None]
  - NAUSEA [None]
  - VOMITING [None]
